FAERS Safety Report 5066162-0 (Version None)
Quarter: 2006Q3

REPORT INFORMATION
  Report Type: 
  Country: None (occurrence: None)
  Receive Date: 20060705
  Receipt Date: 20060515
  Transmission Date: 20061208
  Serious: No
  Sender: FDA-Public Use
  Company Number: US-2005-024342

PATIENT
  Age: 48 Year
  Sex: Female
  Weight: 75 kg

DRUGS (1)
  1. YASMIN [Suspect]
     Dosage: 1 TAB(S),1X/DAY, ORAL
     Route: 048
     Dates: start: 20040613, end: 20040627

REACTIONS (1)
  - THROMBOPHLEBITIS SUPERFICIAL [None]
